FAERS Safety Report 11235782 (Version 1)
Quarter: 2015Q3

REPORT INFORMATION
  Report Type: Spontaneous
  Country: IT (occurrence: IT)
  Receive Date: 20150702
  Receipt Date: 20150702
  Transmission Date: 20151125
  Serious: Yes (Death)
  Sender: FDA-Public Use
  Company Number: IT-INCYTE CORPORATION-2015IN003003

PATIENT
  Age: 67 Year
  Sex: Male

DRUGS (1)
  1. INC424 [Suspect]
     Active Substance: RUXOLITINIB
     Indication: MYELOFIBROSIS
     Dosage: 15 MG, FOR 2.1 MONTHS
     Route: 065

REACTIONS (1)
  - Acute myeloid leukaemia [Fatal]
